FAERS Safety Report 5731104-9 (Version None)
Quarter: 2008Q2

REPORT INFORMATION
  Report Type: 
  Country: None (occurrence: None)
  Receive Date: 20080505
  Receipt Date: 20080429
  Transmission Date: 20081010
  Serious: Yes (Other)
  Sender: FDA-Public Use
  Company Number: 2008SP006408

PATIENT
  Age: 77 Year
  Sex: Female

DRUGS (4)
  1. MIRALAX [Suspect]
     Indication: CONSTIPATION
     Dosage: QD;PO
     Route: 048
     Dates: start: 20080323, end: 20080328
  2. ZETIA [Concomitant]
  3. ATENOLOL [Concomitant]
  4. FLUDROCORTISONE ACETATE [Concomitant]

REACTIONS (1)
  - RECTAL HAEMORRHAGE [None]
